FAERS Safety Report 14056462 (Version 6)
Quarter: 2018Q1

REPORT INFORMATION
  Report Type: Report from Study
  Country: US (occurrence: US)
  Receive Date: 20171006
  Receipt Date: 20180222
  Transmission Date: 20180508
  Serious: Yes (Hospitalization, Other)
  Sender: FDA-Public Use
  Company Number: US-PFIZER INC-2017362860

PATIENT
  Age: 59 Year
  Sex: Female

DRUGS (1)
  1. SUTENT [Suspect]
     Active Substance: SUNITINIB MALATE
     Indication: RENAL CELL CARCINOMA
     Dosage: 50 MG, CYCLIC (DAILY/4 WEEKS ON- 2 WEEKS OFF)
     Route: 048
     Dates: start: 20170817, end: 20171201

REACTIONS (13)
  - Yellow skin [Unknown]
  - Bone marrow failure [Unknown]
  - Stomatitis [Unknown]
  - Arrhythmia [Unknown]
  - Hypertension [Unknown]
  - Chromaturia [Unknown]
  - Pyrexia [Recovered/Resolved]
  - Fatigue [Recovered/Resolved]
  - Urine analysis abnormal [Unknown]
  - Headache [Recovered/Resolved]
  - Chest pain [Recovered/Resolved]
  - Leukopenia [Recovered/Resolved]
  - Dyspepsia [Unknown]

NARRATIVE: CASE EVENT DATE: 2017
